FAERS Safety Report 6580682-9 (Version None)
Quarter: 2010Q1

REPORT INFORMATION
  Report Type: 
  Country: None (occurrence: None)
  Receive Date: 20100212
  Receipt Date: 20100201
  Transmission Date: 20100710
  Serious: Yes (Other)
  Sender: FDA-Public Use
  Company Number: US-CELGENEUS-163-21880-09080527

PATIENT
  Sex: Female

DRUGS (3)
  1. REVLIMID [Suspect]
     Indication: MULTIPLE MYELOMA
     Route: 048
     Dates: start: 20080601, end: 20090601
  2. REVLIMID [Suspect]
     Route: 048
     Dates: start: 20071001
  3. REVLIMID [Suspect]
     Route: 048
     Dates: start: 20080301, end: 20080101

REACTIONS (1)
  - DEMENTIA [None]
